FAERS Safety Report 6652823-6 (Version None)
Quarter: 2010Q1

REPORT INFORMATION
  Report Type: 
  Country: None (occurrence: None)
  Receive Date: 20100325
  Receipt Date: 20100325
  Transmission Date: 20100710
  Serious: Yes (Other)
  Sender: FDA-Public Use
  Company Number: None

PATIENT
  Age: 69 Year
  Sex: Female
  Weight: 74.8435 kg

DRUGS (1)
  1. SUCRALFATE [Suspect]
     Indication: OESOPHAGEAL ULCER
     Dosage: 1  4XDAY PO
     Route: 048
     Dates: start: 20100323, end: 20100323

REACTIONS (10)
  - ABDOMINAL DISTENSION [None]
  - ABDOMINAL PAIN [None]
  - ERYTHEMA [None]
  - FEELING HOT [None]
  - FLATULENCE [None]
  - HYPERHIDROSIS [None]
  - PRURITUS [None]
  - RASH [None]
  - SWELLING FACE [None]
  - SWOLLEN TONGUE [None]
